FAERS Safety Report 9664411 (Version 1)
Quarter: 2013Q4

REPORT INFORMATION
  Report Type: Spontaneous
  Country: US (occurrence: None)
  Receive Date: 20131030
  Receipt Date: 20131030
  Transmission Date: 20140711
  Serious: Yes (Hospitalization)
  Sender: FDA-Public Use
  Company Number: None

PATIENT
  Age: 54 Year
  Sex: Female
  Weight: 65 kg

DRUGS (13)
  1. AMLODIPINE [Suspect]
     Indication: OVERDOSE
     Route: 048
     Dates: end: 20110630
  2. CLONAZEPAM [Concomitant]
  3. WARFARIN [Concomitant]
  4. PHENYTOIN [Concomitant]
  5. METOPROLOL [Concomitant]
  6. TRAZODONE [Concomitant]
  7. TOPIRAMATE [Concomitant]
  8. DOCUSATE [Concomitant]
  9. FOLIC ACID [Concomitant]
  10. HYDROCHLOROTHIAZIDE [Concomitant]
  11. LEVETIRACETAM [Concomitant]
  12. LISINOPRIL [Concomitant]
  13. LANSOPRAZOLE [Concomitant]

REACTIONS (8)
  - Bradycardia [None]
  - Arrhythmia [None]
  - Convulsion [None]
  - Anxiety [None]
  - Shock [None]
  - Suicide attempt [None]
  - Hypotension [None]
  - Overdose [None]
